FAERS Safety Report 16489154 (Version 1)
Quarter: 2019Q2

REPORT INFORMATION
  Report Type: Spontaneous
  Country: US (occurrence: US)
  Receive Date: 20190628
  Receipt Date: 20190628
  Transmission Date: 20190711
  Serious: No
  Sender: FDA-Public Use
  Company Number: US-ACCORD-068445

PATIENT
  Age: 57 Year
  Sex: Female
  Weight: 63.5 kg

DRUGS (1)
  1. CLONAZEPAM ACCORD [Suspect]
     Active Substance: CLONAZEPAM
     Indication: ANXIETY DISORDER
     Dosage: 1/2 TABLET TO 1 MG DAILY AS NEEDED?STRENGTH: 1 MG?DURATION: FOR ABOUT 3 WEEKS
     Route: 048

REACTIONS (3)
  - Drug ineffective [Unknown]
  - Drug screen negative [Unknown]
  - Product substitution issue [Unknown]
